FAERS Safety Report 8862150 (Version 1)
Quarter: 2012Q4

REPORT INFORMATION
  Report Type: 
  Country: US (occurrence: US)
  Receive Date: 20121026
  Receipt Date: 20121026
  Transmission Date: 20130627
  Serious: Yes (Hospitalization)
  Sender: FDA-Public Use
  Company Number: US-B.I. PHARMACEUTICALS,INC./RIDGEFIELD-2012-BP-26258BP

PATIENT
  Age: 85 Year
  Sex: Female
  Weight: 57 kg

DRUGS (4)
  1. SPIRIVA [Suspect]
     Indication: CHRONIC OBSTRUCTIVE PULMONARY DISEASE
     Dosage: 18 mcg
     Route: 055
  2. CELEXA [Concomitant]
     Indication: ANXIETY
     Dosage: 20 mg
     Route: 048
     Dates: start: 2008
  3. ENALAPRIL [Concomitant]
     Indication: HYPERTENSION
     Dosage: 2.5 mg
     Route: 048
     Dates: start: 2009
  4. LIPITOR [Concomitant]
     Indication: BLOOD CHOLESTEROL INCREASED
     Dosage: 20 mg
     Route: 048
     Dates: start: 2010

REACTIONS (2)
  - Pelvic fracture [Not Recovered/Not Resolved]
  - Product quality issue [Recovered/Resolved]
